FAERS Safety Report 26211373 (Version 1)
Quarter: 2025Q4

REPORT INFORMATION
  Report Type: Report from Study
  Country: JP (occurrence: JP)
  Receive Date: 20251230
  Receipt Date: 20251230
  Transmission Date: 20260118
  Serious: Yes (Death, Other)
  Sender: ROCHE
  Company Number: JP-ROCHE-10000471198

PATIENT
  Sex: Male
  Weight: 55 kg

DRUGS (1)
  1. EMICIZUMAB [Suspect]
     Active Substance: EMICIZUMAB
     Indication: Factor VIII deficiency

REACTIONS (4)
  - Putamen haemorrhage [Fatal]
  - Liver disorder [Recovering/Resolving]
  - Hepatic function abnormal [Recovering/Resolving]
  - Pneumonia aspiration [Recovered/Resolved]
